FAERS Safety Report 7438019-9 (Version None)
Quarter: 2011Q2

REPORT INFORMATION
  Report Type: 
  Country: None (occurrence: None)
  Receive Date: 20110426
  Receipt Date: 20101005
  Transmission Date: 20111010
  Serious: No
  Sender: FDA-Public Use
  Company Number: US-MYLANLABS-2010S1016476

PATIENT
  Age: 83 Year
  Sex: Female

DRUGS (1)
  1. NITROFURANTOIN MONOHYDRATE/MACROCRYSTALS [Suspect]
     Indication: CYSTITIS
     Dates: start: 20100329, end: 20100329

REACTIONS (7)
  - DYSSTASIA [None]
  - PAIN [None]
  - TREMOR [None]
  - ABASIA [None]
  - MALAISE [None]
  - FEELING HOT [None]
  - HYPERSENSITIVITY [None]
